FAERS Safety Report 11722503 (Version 1)
Quarter: 2015Q4

REPORT INFORMATION
  Report Type: Spontaneous
  Country: US (occurrence: US)
  Receive Date: 20151111
  Receipt Date: 20151111
  Transmission Date: 20160304
  Serious: Yes (Hospitalization)
  Sender: FDA-Public Use
  Company Number: PHEH2015US022926

PATIENT
  Age: 48 Year
  Sex: Male

DRUGS (1)
  1. GILENYA [Suspect]
     Active Substance: FINGOLIMOD HYDROCHLORIDE
     Indication: PRODUCT USED FOR UNKNOWN INDICATION
     Dosage: UNK
     Route: 065
     Dates: end: 20131030

REACTIONS (4)
  - Gait disturbance [Unknown]
  - General physical health deterioration [Unknown]
  - Multiple sclerosis relapse [Unknown]
  - Movement disorder [Unknown]

NARRATIVE: CASE EVENT DATE: 2013
